FAERS Safety Report 13013029 (Version 1)
Quarter: 2016Q4

REPORT INFORMATION
  Report Type: Spontaneous
  Country: US (occurrence: US)
  Receive Date: 20161208
  Receipt Date: 20161208
  Transmission Date: 20170207
  Serious: No
  Sender: FDA-Public Use
  Company Number: None

PATIENT
  Age: 59 Year
  Sex: Male
  Weight: 81.8 kg

DRUGS (1)
  1. TAXOL [Suspect]
     Active Substance: PACLITAXEL
     Indication: TONSIL CANCER
     Route: 042
     Dates: start: 20161118

REACTIONS (4)
  - Back pain [None]
  - Infusion related reaction [None]
  - Blood pressure increased [None]
  - Similar reaction on previous exposure to drug [None]

NARRATIVE: CASE EVENT DATE: 20161118
